FAERS Safety Report 24536557 (Version 3)
Quarter: 2024Q4

REPORT INFORMATION
  Report Type: Spontaneous
  Country: US (occurrence: US)
  Receive Date: 20241022
  Receipt Date: 20241216
  Transmission Date: 20250115
  Serious: No
  Sender: SANOFI AVENTIS
  Company Number: US-SA-2024SA290251

PATIENT
  Age: 37 Year
  Sex: Male

DRUGS (4)
  1. DUPIXENT [Suspect]
     Active Substance: DUPILUMAB
     Indication: Oesophageal obstruction
     Dosage: 300 MG, QW
     Route: 058
     Dates: start: 20241002
  2. DUPIXENT [Suspect]
     Active Substance: DUPILUMAB
     Indication: Gastritis
  3. DUPIXENT [Suspect]
     Active Substance: DUPILUMAB
     Indication: Oesophageal disorder
  4. DUPIXENT [Suspect]
     Active Substance: DUPILUMAB
     Indication: Eosinophilic oesophagitis

REACTIONS (10)
  - Arthralgia [Recovered/Resolved]
  - Night sweats [Recovered/Resolved]
  - Eye irritation [Recovered/Resolved]
  - Chest pain [Not Recovered/Not Resolved]
  - Pain in extremity [Recovered/Resolved]
  - Dry eye [Recovered/Resolved]
  - Generalised anxiety disorder [Recovered/Resolved]
  - Palpitations [Unknown]
  - Insomnia [Recovered/Resolved]
  - Product use in unapproved indication [Unknown]

NARRATIVE: CASE EVENT DATE: 20241001
